FAERS Safety Report 6134973-6 (Version None)
Quarter: 2009Q1

REPORT INFORMATION
  Report Type: 
  Country: None (occurrence: None)
  Receive Date: 20090325
  Receipt Date: 20090308
  Transmission Date: 20090719
  Serious: Yes (Other)
  Sender: FDA-Public Use
  Company Number: 2007S1000541

PATIENT
  Age: 46 Year
  Sex: Male
  Weight: 90.2658 kg

DRUGS (5)
  1. PHOSPHOSODA FALVOR NOT SPECIFIED [Suspect]
     Indication: COLONOSCOPY
     Dosage: 90 ML; TOTAL; PO
     Route: 048
     Dates: start: 20041130, end: 20041130
  2. LISINOPRIL [Concomitant]
  3. HYDROCHLORTHIAZID [Concomitant]
  4. ATENOLOL [Concomitant]
  5. CIMETIDINE HCL [Concomitant]

REACTIONS (6)
  - ANXIETY [None]
  - BLOOD PRESSURE INCREASED [None]
  - FOCAL GLOMERULOSCLEROSIS [None]
  - HYPOTENSION [None]
  - INJURY [None]
  - RENAL FAILURE CHRONIC [None]
